FAERS Safety Report 5313353-7 (Version None)
Quarter: 2007Q1

REPORT INFORMATION
  Report Type: 
  Country: None (occurrence: None)
  Receive Date: 20070201
  Receipt Date: 20061214
  Transmission Date: 20070707
  Serious: No
  Sender: FDA-Public Use
  Company Number: VNL_0338_2006

PATIENT
  Age: 59 Year
  Sex: Female
  Weight: 54.4316 kg

DRUGS (3)
  1. APOKYN [Suspect]
     Indication: PARKINSON'S DISEASE
     Dosage: 0.2  ML PRN SC
     Route: 058
     Dates: start: 20060101, end: 20060801
  2. APOKYN [Suspect]
     Indication: PARKINSON'S DISEASE
     Dosage: 0.3 ML SC
     Route: 058
     Dates: start: 20060801
  3. ANTIEMETIC [Concomitant]

REACTIONS (2)
  - NAUSEA [None]
  - VOMITING [None]
